FAERS Safety Report 20435500 (Version 1)
Quarter: 2022Q1

REPORT INFORMATION
  Report Type: Spontaneous
  Country: CN (occurrence: CN)
  Receive Date: 20220206
  Receipt Date: 20220206
  Transmission Date: 20220423
  Serious: Yes (Other)
  Sender: FDA-Public Use
  Company Number: CN-BEH-2022141658

PATIENT
  Age: 83 Year
  Sex: Female

DRUGS (7)
  1. ALBUMIN HUMAN [Suspect]
     Active Substance: ALBUMIN HUMAN
     Indication: Hypoproteinaemia
     Dosage: 10 GRAM, QD
     Route: 041
     Dates: start: 20220118, end: 20220120
  2. ALBUMIN HUMAN [Suspect]
     Active Substance: ALBUMIN HUMAN
     Indication: Hypoalbuminaemia
  3. DYPHYLLINE [Suspect]
     Active Substance: DYPHYLLINE
     Indication: Chronic obstructive pulmonary disease
     Dosage: 0.5 GRAM, QD
     Route: 041
     Dates: start: 20220119, end: 20220119
  4. DYPHYLLINE [Suspect]
     Active Substance: DYPHYLLINE
     Indication: Bronchospasm
  5. OXYGEN [Concomitant]
     Active Substance: OXYGEN
     Dosage: 3 LITER/MIN
     Route: 055
     Dates: start: 20220118
  6. OXYGEN [Concomitant]
     Active Substance: OXYGEN
     Dosage: 2 LITER/MIN
     Route: 055
     Dates: start: 20220119
  7. OXYGEN [Concomitant]
     Active Substance: OXYGEN
     Dosage: 5 LITER/MIN
     Route: 055
     Dates: start: 20220119

REACTIONS (4)
  - Chills [Recovering/Resolving]
  - Palpitations [Recovering/Resolving]
  - Chest pain [Recovering/Resolving]
  - Chest discomfort [Recovering/Resolving]

NARRATIVE: CASE EVENT DATE: 20220119
